FAERS Safety Report 17214263 (Version 3)
Quarter: 2020Q1

REPORT INFORMATION
  Report Type: Spontaneous
  Country: NL (occurrence: NL)
  Receive Date: 20191230
  Receipt Date: 20200210
  Transmission Date: 20200409
  Serious: Yes (Other)
  Sender: FDA-Public Use
  Company Number: NL-MYLANLABS-2019M1126977

PATIENT
  Age: 44 Year
  Sex: Female

DRUGS (10)
  1. TRACYDAL [Suspect]
     Active Substance: TRANYLCYPROMINE SULFATE
     Indication: DEPRESSION
     Dosage: TAKEN IN MORNING,1 TIME DAILY,3 TABLET
     Dates: start: 20160721
  2. QUETIAPINE. [Suspect]
     Active Substance: QUETIAPINE
     Indication: PRODUCT USED FOR UNKNOWN INDICATION
     Dosage: 1 TIME DAILY, 1 TABLET
     Dates: start: 2011
  3. DESOGESTREL [Concomitant]
     Active Substance: DESOGESTREL
     Indication: PRODUCT USED FOR UNKNOWN INDICATION
     Dosage: 2 DOSAGE FORM, QD(1 TIME DAILY, 2 TABLETS)
  4. HALOPERIDOL. [Concomitant]
     Active Substance: HALOPERIDOL
     Indication: PRODUCT USED FOR UNKNOWN INDICATION
     Dosage: 1 TABLET, 1 TIME DAILY 2 TABLETS
  5. ALPRAZOLAM. [Concomitant]
     Active Substance: ALPRAZOLAM
     Indication: PRODUCT USED FOR UNKNOWN INDICATION
     Dosage: 0.5 MILLIGRAM, PRN (AS REQUIRED)
  6. COLECALCIFEROL [Concomitant]
     Active Substance: CHOLECALCIFEROL
     Indication: PRODUCT USED FOR UNKNOWN INDICATION
     Dosage: 1 TABLET WEEKLY
  7. ZOPICLON [Concomitant]
     Active Substance: ZOPICLONE
     Indication: PRODUCT USED FOR UNKNOWN INDICATION
     Dosage: 1 TIME DAILY, 1 TABLET
  8. FENPROCOUMON [Concomitant]
     Active Substance: PHENPROCOUMON
     Indication: PRODUCT USED FOR UNKNOWN INDICATION
     Dosage: ACCORDING TO SCHEME THROMBOSIS SERVICE
  9. LEVOTHYROXINE SODIUM. [Concomitant]
     Active Substance: LEVOTHYROXINE SODIUM
     Dosage: 3.5 DOSAGE FORM, QD
  10. PANTOPRAZOL                        /01263201/ [Concomitant]
     Active Substance: PANTOPRAZOLE
     Indication: PRODUCT USED FOR UNKNOWN INDICATION
     Dosage: 1 TIME DAILY, 1 TABLET

REACTIONS (3)
  - Contraindicated product administered [Not Recovered/Not Resolved]
  - Hypertensive crisis [Recovered/Resolved]
  - Hypertension [Recovered/Resolved]

NARRATIVE: CASE EVENT DATE: 2018
